FAERS Safety Report 8983672 (Version 3)
Quarter: 2013Q3

REPORT INFORMATION
  Report Type: Spontaneous
  Country: US (occurrence: US)
  Receive Date: 20121224
  Receipt Date: 20130920
  Transmission Date: 20140515
  Serious: Yes (Other)
  Sender: FDA-Public Use
  Company Number: US-BRISTOL-MYERS SQUIBB COMPANY-16970808

PATIENT
  Age: 55 Year
  Sex: Female

DRUGS (5)
  1. ORENCIA [Suspect]
     Indication: RHEUMATOID ARTHRITIS
     Dosage: 5 INF. LAST INF: 4DEC12, 28AUG13
     Route: 042
     Dates: start: 20120905, end: 20130107
  2. CRESTOR [Concomitant]
  3. NEXIUM [Concomitant]
  4. CALTRATE [Concomitant]
     Dosage: 1DF:400-1500MG
  5. VITAMIN D [Concomitant]
     Dosage: 1DF:400

REACTIONS (6)
  - Gallbladder disorder [Unknown]
  - Erythema [Unknown]
  - Drug ineffective [Unknown]
  - Fatigue [Unknown]
  - Hypotension [Unknown]
  - Nasopharyngitis [Unknown]
